FAERS Safety Report 5449585-7 (Version None)
Quarter: 2007Q3

REPORT INFORMATION
  Report Type: 
  Country: None (occurrence: None)
  Receive Date: 20070910
  Receipt Date: 20060511
  Transmission Date: 20080115
  Serious: Yes (Other)
  Sender: FDA-Public Use
  Company Number: 2006VX001783

PATIENT

DRUGS (1)
  1. TASMAR [Suspect]
     Dosage: PO
     Route: 048

REACTIONS (2)
  - MUSCLE RIGIDITY [None]
  - PARKINSONISM [None]
